FAERS Safety Report 4538176-8 (Version None)
Quarter: 2004Q4

REPORT INFORMATION
  Report Type: 
  Country: None (occurrence: None)
  Receive Date: 20041227
  Receipt Date: 20041214
  Transmission Date: 20050328
  Serious: Yes (Hospitalization)
  Sender: FDA-Public Use
  Company Number: CH-BRISTOL-MYERS SQUIBB COMPANY-12799854

PATIENT
  Age: 32 Year
  Sex: Female

DRUGS (4)
  1. ABILIFY [Suspect]
     Indication: SCHIZOPHRENIA
     Dosage: 15 MG/DAY OCT-2004; THEN D/C; THEN REINTRODUCED @ 30 MG/DAY
     Dates: start: 20041001
  2. SOLIAN [Concomitant]
  3. HALOPERIDOL [Concomitant]
  4. LORAZEPAM [Concomitant]

REACTIONS (1)
  - SCHIZOPHRENIA [None]
